FAERS Safety Report 6249232-0 (Version None)
Quarter: 2009Q2

REPORT INFORMATION
  Report Type: 
  Country: None (occurrence: None)
  Receive Date: 20090624
  Receipt Date: 20090617
  Transmission Date: 20091009
  Serious: Yes (Death)
  Sender: FDA-Public Use
  Company Number: ADR5202009

PATIENT
  Age: 82 Year
  Sex: Male

DRUGS (22)
  1. CIPROFLOXACIN [Suspect]
     Indication: PNEUMONIA
     Dosage: 400 MG INTRAVENOUS
     Route: 042
     Dates: start: 20050628, end: 20050630
  2. CIPROFLOXACIN [Suspect]
     Dosage: ORAL
     Route: 048
     Dates: start: 20050630, end: 20050702
  3. FUROSEMIDE [Concomitant]
  4. GENTAMICIN [Concomitant]
  5. CALCICHEW D3 [Concomitant]
  6. CEFTRIAXONE [Concomitant]
  7. DALTEPARIN SODIUM [Concomitant]
  8. DOCUSATE [Concomitant]
  9. DOSOLEPIN [Concomitant]
  10. HALOPERIDOL [Concomitant]
  11. HYOSCINE [Concomitant]
  12. IPRATROPIUM BROMIDE [Concomitant]
  13. METRONIDAZOLE [Concomitant]
  14. MIDAZOLAM HCL [Concomitant]
  15. MORPHINE [Concomitant]
  16. MS CONTIN [Concomitant]
  17. OMEPRAZOLE [Concomitant]
  18. ALBUTEROL [Concomitant]
  19. SANDO-K [Concomitant]
  20. SODIUM BICARBONATE [Concomitant]
  21. TERBUTALINE SULFATE [Concomitant]
  22. WARFARIN SODIUM [Concomitant]

REACTIONS (7)
  - BLOOD POTASSIUM DECREASED [None]
  - CLOSTRIDIUM DIFFICILE COLITIS [None]
  - COLONIC PSEUDO-OBSTRUCTION [None]
  - CONVULSION [None]
  - INTERNATIONAL NORMALISED RATIO INCREASED [None]
  - LOWER RESPIRATORY TRACT INFECTION [None]
  - PULMONARY OEDEMA [None]
